FAERS Safety Report 8001287-9 (Version None)
Quarter: 2011Q4

REPORT INFORMATION
  Report Type: 
  Country: None (occurrence: None)
  Receive Date: 20111222
  Receipt Date: 20111216
  Transmission Date: 20120403
  Serious: Yes (Other)
  Sender: FDA-Public Use
  Company Number: US-BAYER-2011-121495

PATIENT
  Age: 44 Year
  Sex: Female

DRUGS (2)
  1. YAZ [Suspect]
     Dosage: UNK
     Dates: start: 20070701, end: 20080701
  2. YASMIN [Suspect]
     Dosage: UNK
     Dates: start: 20070701, end: 20080701

REACTIONS (5)
  - POST CHOLECYSTECTOMY SYNDROME [None]
  - INJURY [None]
  - PAIN [None]
  - ANXIETY [None]
  - GALLBLADDER DISORDER [None]
